FAERS Safety Report 12225569 (Version 3)
Quarter: 2016Q3

REPORT INFORMATION
  Report Type: Report from Study
  Country: US (occurrence: US)
  Receive Date: 20160331
  Receipt Date: 20160706
  Transmission Date: 20161109
  Serious: Yes (Hospitalization, Other)
  Sender: FDA-Public Use
  Company Number: US-BAYER-2016-056073

PATIENT
  Age: 67 Year
  Sex: Female
  Weight: 74.83 kg

DRUGS (5)
  1. ADEMPAS [Suspect]
     Active Substance: RIOCIGUAT
     Indication: PULMONARY ARTERIAL HYPERTENSION
     Dosage: UNK
  2. VELETRI [Concomitant]
     Active Substance: EPOPROSTENOL
  3. OPSUMIT [Concomitant]
     Active Substance: MACITENTAN
  4. ADEMPAS [Suspect]
     Active Substance: RIOCIGUAT
     Indication: PULMONARY ARTERIAL HYPERTENSION
     Dosage: UNK
     Dates: start: 20160302
  5. ADEMPAS [Suspect]
     Active Substance: RIOCIGUAT
     Indication: PULMONARY ARTERIAL HYPERTENSION
     Dosage: 0.5 MG, TID
     Route: 048

REACTIONS (12)
  - Abdominal rigidity [None]
  - Constipation [None]
  - Heart rate increased [None]
  - Dyspnoea [Not Recovered/Not Resolved]
  - Lung disorder [Unknown]
  - Cardiac septal defect [Unknown]
  - Oedema [Not Recovered/Not Resolved]
  - Nausea [None]
  - Weight increased [Not Recovered/Not Resolved]
  - Fluid retention [Unknown]
  - Chest pain [None]
  - Peripheral swelling [Not Recovered/Not Resolved]

NARRATIVE: CASE EVENT DATE: 20160305
